FAERS Safety Report 6429759-9 (Version None)
Quarter: 2009Q4

REPORT INFORMATION
  Report Type: 
  Country: None (occurrence: None)
  Receive Date: 20091103
  Receipt Date: 20091027
  Transmission Date: 20100525
  Serious: Yes (Other)
  Sender: FDA-Public Use
  Company Number: 2009AL000447

PATIENT
  Age: 53 Year
  Sex: Male

DRUGS (4)
  1. GABAPENTIN [Suspect]
     Indication: ANALGESIC THERAPY
     Dosage: 300 MG; PO
     Route: 048
     Dates: start: 20080331, end: 20080520
  2. TRAMADOL HCL [Concomitant]
  3. LANSOPRAZOLE [Concomitant]
  4. PANCREATIN [Concomitant]

REACTIONS (2)
  - DEPRESSED MOOD [None]
  - SUICIDAL IDEATION [None]
